FAERS Safety Report 4682878-X (Version None)
Quarter: 2005Q2

REPORT INFORMATION
  Report Type: 
  Country: None (occurrence: None)
  Receive Date: 20050602
  Receipt Date: 20050125
  Transmission Date: 20051028
  Serious: No
  Sender: FDA-Public Use
  Company Number: US_0502112079

PATIENT
  Age: 32 Year
  Sex: Female

DRUGS (2)
  1. CYMBALTA [Suspect]
     Dosage: 30 MG DAY
  2. LEXAPRO [Concomitant]

REACTIONS (1)
  - CHEST DISCOMFORT [None]
